FAERS Safety Report 9318212 (Version 1)
Quarter: 2013Q2

REPORT INFORMATION
  Report Type: Spontaneous
  Country: US (occurrence: US)
  Receive Date: 20130530
  Receipt Date: 20130530
  Transmission Date: 20140414
  Serious: No
  Sender: FDA-Public Use
  Company Number: US-GLAXOSMITHKLINE-A1008545A

PATIENT
  Age: 51 Year
  Sex: Female

DRUGS (9)
  1. VENTOLIN [Suspect]
     Indication: ASTHMA
     Dosage: 2PUFF AS REQUIRED
     Route: 055
     Dates: start: 200307
  2. PROAIR HFA [Suspect]
     Route: 055
  3. PROVENTIL HFA [Suspect]
     Route: 055
  4. TRIAMTERENE [Concomitant]
  5. DICLOFENAC [Concomitant]
  6. OXYCODONE [Concomitant]
  7. MORPHINE [Concomitant]
  8. SIMVASTATIN [Concomitant]
  9. ANTI-INFLAMMATORY [Concomitant]
     Indication: BACK DISORDER

REACTIONS (3)
  - Drug effect decreased [Unknown]
  - Inhalation therapy [Unknown]
  - Product quality issue [Unknown]
